FAERS Safety Report 15448739 (Version 1)
Quarter: 2018Q3

REPORT INFORMATION
  Report Type: Spontaneous
  Country: US (occurrence: US)
  Receive Date: 20180929
  Receipt Date: 20180929
  Transmission Date: 20181010
  Serious: Yes (Other)
  Sender: FDA-Public Use
  Company Number: US-SA-2018SA268643

PATIENT
  Sex: Male
  Weight: 81 kg

DRUGS (1)
  1. AUBAGIO [Suspect]
     Active Substance: TERIFLUNOMIDE
     Indication: MULTIPLE SCLEROSIS
     Dosage: 7 MG, QD
     Route: 048
     Dates: start: 201808

REACTIONS (7)
  - Depression [Unknown]
  - Alopecia [Unknown]
  - Hepatitis A [Unknown]
  - Abdominal pain [Unknown]
  - Condition aggravated [Unknown]
  - Chills [Unknown]
  - Neuropathy peripheral [Unknown]
